FAERS Safety Report 5161039-4 (Version None)
Quarter: 2006Q4

REPORT INFORMATION
  Report Type: 
  Country: None (occurrence: None)
  Receive Date: 20061121
  Receipt Date: 20061106
  Transmission Date: 20070319
  Serious: Yes (Hospitalization, Other)
  Sender: FDA-Public Use
  Company Number: 2006139774

PATIENT
  Age: 86 Year
  Sex: Female

DRUGS (2)
  1. DIABINESE [Suspect]
     Indication: DIABETES MELLITUS
     Dates: start: 19910101
  2. HIGROTON                      (CHLORTALIDONE) [Concomitant]

REACTIONS (6)
  - BLOOD CHOLESTEROL INCREASED [None]
  - CONDITION AGGRAVATED [None]
  - DIZZINESS [None]
  - HYPERTENSION [None]
  - PNEUMONIA [None]
  - SKIN EXFOLIATION [None]
